FAERS Safety Report 7892168-X (Version None)
Quarter: 2011Q4

REPORT INFORMATION
  Report Type: 
  Country: None (occurrence: None)
  Receive Date: 20111103
  Receipt Date: 20111022
  Transmission Date: 20120403
  Serious: Yes (Hospitalization)
  Sender: FDA-Public Use
  Company Number: US-BRISTOL-MYERS SQUIBB COMPANY-16162794

PATIENT
  Age: 53 Year
  Sex: Female
  Weight: 48 kg

DRUGS (10)
  1. FOSAMAX [Concomitant]
  2. COLACE [Concomitant]
  3. LEUKINE [Suspect]
     Indication: MALIGNANT MELANOMA
     Dosage: LAST DOSE ON 19SEP2011
     Route: 058
     Dates: start: 20110725, end: 20110919
  4. CELEXA [Concomitant]
  5. PHENERGAN HCL [Concomitant]
  6. IPILIMUMAB [Suspect]
     Indication: MALIGNANT MELANOMA
     Dosage: LAST DOSE ON 06SEP2011 (600 MG)
     Route: 042
     Dates: start: 20110725, end: 20110906
  7. NEXIUM [Concomitant]
  8. ZOFRAN [Concomitant]
  9. FLONASE [Concomitant]
  10. CEPASTAT [Concomitant]

REACTIONS (12)
  - COLITIS [None]
  - RENAL FAILURE [None]
  - ILEUS [None]
  - CONSTIPATION [None]
  - WEIGHT DECREASED [None]
  - HYPOKALAEMIA [None]
  - SYNCOPE [None]
  - HYPERKALAEMIA [None]
  - PYREXIA [None]
  - SMALL INTESTINAL OBSTRUCTION [None]
  - ANAEMIA [None]
  - DIARRHOEA [None]
